FAERS Safety Report 15713843 (Version 1)
Quarter: 2018Q4

REPORT INFORMATION
  Report Type: Spontaneous
  Country: US (occurrence: US)
  Receive Date: 20181212
  Receipt Date: 20181212
  Transmission Date: 20190205
  Serious: No
  Sender: FDA-Public Use
  Company Number: US-BAYER-2018-228593

PATIENT
  Sex: Female

DRUGS (2)
  1. MIDOL EXTENDED RELIEF [Suspect]
     Active Substance: NAPROXEN SODIUM
     Dosage: NO LESS THAT 2000MG EVERY 4 HRS
  2. NAPROXEN. [Concomitant]
     Active Substance: NAPROXEN

REACTIONS (5)
  - Photosensitivity reaction [Unknown]
  - Incorrect dose administered [Unknown]
  - Adnexa uteri pain [None]
  - Pain [Unknown]
  - Arthralgia [Unknown]
